FAERS Safety Report 12062077 (Version 1)
Quarter: 2016Q1

REPORT INFORMATION
  Report Type: Spontaneous
  Country: US (occurrence: US)
  Receive Date: 20160210
  Receipt Date: 20160210
  Transmission Date: 20160526
  Serious: Yes (Other)
  Sender: FDA-Public Use
  Company Number: US-ROXANE LABORATORIES, INC.-2016-RO-00216RO

PATIENT
  Sex: Female
  Weight: 63.5 kg

DRUGS (1)
  1. PREDNISONE TABLETS USP, 5MG [Suspect]
     Active Substance: PREDNISONE
     Indication: RHEUMATOID ARTHRITIS
     Dosage: 5 MG
     Route: 065

REACTIONS (5)
  - Adrenal insufficiency [Not Recovered/Not Resolved]
  - Palpitations [Not Recovered/Not Resolved]
  - Skin atrophy [Not Recovered/Not Resolved]
  - Myopathy [Not Recovered/Not Resolved]
  - Contusion [Not Recovered/Not Resolved]
